FAERS Safety Report 9131800 (Version 2)
Quarter: 2013Q3

REPORT INFORMATION
  Report Type: Spontaneous
  Country: US (occurrence: US)
  Receive Date: 20130301
  Receipt Date: 20130726
  Transmission Date: 20140515
  Serious: Yes (Other)
  Sender: FDA-Public Use
  Company Number: US-ABBOTT-13P-163-1054785-00

PATIENT
  Sex: Female
  Weight: 20.9 kg

DRUGS (8)
  1. ADALIMUMAB [Suspect]
     Indication: CROHN^S DISEASE
  2. ADALIMUMAB [Suspect]
  3. METHOTREXATE [Suspect]
     Indication: CROHN^S DISEASE
     Dosage: OFF AND ON
     Dates: start: 2007
  4. METHOTREXATE [Suspect]
  5. CORTICOSTEROIDS [Suspect]
     Indication: CROHN^S DISEASE
  6. AZATHIOPRINE [Suspect]
     Indication: CROHN^S DISEASE
     Dosage: 2.5-3.5 MG/KG/DAY
     Route: 048
     Dates: end: 2011
  7. INFLIXIMAB [Suspect]
     Indication: CROHN^S DISEASE
     Route: 042
     Dates: start: 2007, end: 2008
  8. PREDNISONE [Suspect]
     Indication: CROHN^S DISEASE
     Dosage: VARIES ON AND OFF
     Route: 048
     Dates: start: 2007, end: 2011

REACTIONS (3)
  - Diffuse large B-cell lymphoma [Recovered/Resolved]
  - No therapeutic response [Unknown]
  - Infection [Unknown]
